FAERS Safety Report 21161315 (Version 1)
Quarter: 2022Q3

REPORT INFORMATION
  Report Type: Spontaneous
  Country: US (occurrence: None)
  Receive Date: 20220801
  Receipt Date: 20220801
  Transmission Date: 20221026
  Serious: Yes (Disabling)
  Sender: FDA-Public Use
  Company Number: None

PATIENT
  Age: 31 Year
  Sex: Male
  Weight: 60.75 kg

DRUGS (2)
  1. UP AND UP MINOXIDIL [Suspect]
     Active Substance: MINOXIDIL
     Indication: Hair growth abnormal
     Dosage: OTHER QUANTITY : 3 DROP(S);?FREQUENCY : TWICE A DAY;?
     Route: 061
     Dates: start: 20220701, end: 20220720
  2. VITAMINS [Concomitant]
     Active Substance: VITAMINS

REACTIONS (6)
  - Anxiety [None]
  - Chest pain [None]
  - Dyspnoea [None]
  - Abdominal pain upper [None]
  - Suffocation feeling [None]
  - Intentional product misuse [None]

NARRATIVE: CASE EVENT DATE: 20220720
